FAERS Safety Report 4993337-9 (Version None)
Quarter: 2006Q2

REPORT INFORMATION
  Report Type: 
  Country: None (occurrence: None)
  Receive Date: 20060505
  Receipt Date: 20060427
  Transmission Date: 20061013
  Serious: Yes (Other)
  Sender: FDA-Public Use
  Company Number: 2006UW07597

PATIENT
  Age: 75 Year
  Sex: Female
  Weight: 79.4 kg

DRUGS (8)
  1. CRESTOR [Suspect]
     Indication: BLOOD CHOLESTEROL INCREASED
     Route: 048
  2. COREG [Concomitant]
  3. XANAX [Concomitant]
  4. EXTRA STRENGTH TYLENOL [Concomitant]
  5. M.V.I. [Concomitant]
  6. FIBERCON [Concomitant]
  7. ASCORBIC ACID [Concomitant]
  8. COQ10 [Concomitant]

REACTIONS (5)
  - ARTHRALGIA [None]
  - BONE PAIN [None]
  - FRACTURED COCCYX [None]
  - MYALGIA [None]
  - PAIN IN EXTREMITY [None]
